FAERS Safety Report 17868598 (Version 1)
Quarter: 2020Q2

REPORT INFORMATION
  Report Type: Spontaneous
  Country: ES (occurrence: ES)
  Receive Date: 20200606
  Receipt Date: 20200606
  Transmission Date: 20200714
  Serious: Yes (Other)
  Sender: FDA-Public Use
  Company Number: ES-JNJFOC-20200600379

PATIENT

DRUGS (4)
  1. IBUPROFEN. [Suspect]
     Active Substance: IBUPROFEN
     Indication: DRUG PROVOCATION TEST
     Dosage: IBUPROFEN WASGIVEN IN AN INTERVAL OF 90 MINS WITH DOSES OF 5 MG, 20MG AND 50MG ON THE FIRST DAY AND
     Route: 048
  2. AMOXICILLIN. [Concomitant]
     Active Substance: AMOXICILLIN
     Indication: PRODUCT USED FOR UNKNOWN INDICATION
     Route: 065
  3. IBUPROFEN. [Suspect]
     Active Substance: IBUPROFEN
     Dosage: ADMINISTERED 75MG, 75MG, 300MG IN AN INTERVAL OF 90 MINS ON THE SECOND DAY
     Route: 048
  4. AMOXICILLIN CLAVULANIC ACID [Concomitant]
     Active Substance: AMOXICILLIN\CLAVULANIC ACID
     Indication: PRODUCT USED FOR UNKNOWN INDICATION
     Route: 065

REACTIONS (11)
  - Off label use [Unknown]
  - Drug eruption [Unknown]
  - Asthma [Unknown]
  - Wrong technique in product usage process [Unknown]
  - Product use in unapproved indication [Unknown]
  - Rhinitis [Unknown]
  - Anaphylactic reaction [Unknown]
  - Angioedema [Unknown]
  - Rash maculo-papular [Unknown]
  - Hypersensitivity [Unknown]
  - Urticaria [Unknown]
